FAERS Safety Report 8215137-9 (Version None)
Quarter: 2012Q1

REPORT INFORMATION
  Report Type: 
  Country: None (occurrence: None)
  Receive Date: 20120314
  Receipt Date: 20120229
  Transmission Date: 20120608
  Serious: Yes (Death, Hospitalization)
  Sender: FDA-Public Use
  Company Number: 20120104

PATIENT
  Age: 78 Year
  Sex: Female

DRUGS (1)
  1. VENOFER (IRON SUCROSE INJECTION, USP) (49230-534-10) 20 MG/ML [Suspect]
     Dosage: 200 MG OVER 15 MINUTES INTRAVENOUS BOLUS
     Route: 040
     Dates: start: 20120111, end: 20120111

REACTIONS (7)
  - BACK PAIN [None]
  - PRURITUS [None]
  - NECK PAIN [None]
  - FUNGAL INFECTION [None]
  - CONVULSION [None]
  - GASTROINTESTINAL HAEMORRHAGE [None]
  - URINARY TRACT INFECTION [None]
